FAERS Safety Report 6264161-4 (Version None)
Quarter: 2009Q3

REPORT INFORMATION
  Report Type: 
  Country: None (occurrence: None)
  Receive Date: 20090710
  Receipt Date: 20090629
  Transmission Date: 20100115
  Serious: Yes (Hospitalization, Other)
  Sender: FDA-Public Use
  Company Number: JP-PFIZER INC-2009225204

PATIENT
  Age: 62 Year

DRUGS (2)
  1. LIPITOR [Suspect]
     Indication: HYPERLIPIDAEMIA
     Dosage: 5 MG, UID/QD
     Route: 048
     Dates: start: 20060101, end: 20090519
  2. CALSLOT [Concomitant]
     Dosage: UNK
     Route: 048
     Dates: start: 20060101

REACTIONS (1)
  - INTERSTITIAL LUNG DISEASE [None]
